FAERS Safety Report 23642054 (Version 1)
Quarter: 2024Q1

REPORT INFORMATION
  Report Type: Report from Study
  Country: IT (occurrence: IT)
  Receive Date: 20240318
  Receipt Date: 20240318
  Transmission Date: 20240409
  Serious: Yes (Hospitalization)
  Sender: FDA-Public Use
  Company Number: None

PATIENT
  Age: 41 Year
  Sex: Female

DRUGS (2)
  1. PACLITAXEL [Suspect]
     Active Substance: PACLITAXEL
     Indication: HER2 positive breast cancer
     Dosage: START OF THERAPY 27/10/2023 - WEEKLY THERAPY - 17/11 4 WEEK - 01/12 6 WEEK
     Route: 042
     Dates: start: 20231117, end: 20231201
  2. PHESGO [Suspect]
     Active Substance: HYALURONIDASE-ZZXF\PERTUZUMAB\TRASTUZUMAB
     Indication: HER2 positive breast cancer
     Dosage: START OF THERAPY 27/10/2023 - THERAPY EVERY 21 DAYS - II CYCLE
     Route: 058
     Dates: start: 20231117, end: 20231117

REACTIONS (7)
  - Terminal ileitis [Recovered/Resolved]
  - Paraesthesia [Recovered/Resolved]
  - Stomatitis [Recovered/Resolved]
  - Diarrhoea [Recovered/Resolved]
  - Off label use [Recovering/Resolving]
  - Nausea [Recovered/Resolved]
  - Vomiting [Recovered/Resolved]

NARRATIVE: CASE EVENT DATE: 20231117
